FAERS Safety Report 8954237 (Version 6)
Quarter: 2013Q1

REPORT INFORMATION
  Report Type: Report from Study
  Country: AU (occurrence: AU)
  Receive Date: 20121207
  Receipt Date: 20130125
  Transmission Date: 20140127
  Serious: Yes (Hospitalization)
  Sender: FDA-Public Use
  Company Number: AU-ROCHE-1152890

PATIENT
  Age: 68 Year
  Sex: Male
  Weight: 68.7 kg

DRUGS (19)
  1. BLINDED GDC-0941 [Suspect]
     Indication: NON-SMALL CELL LUNG CANCER
     Dosage: DATE OF MOST RECENT DOSE PRIOR TO SAE 20/NOV/2012
     Route: 048
     Dates: start: 20120815
  2. BEVACIZUMAB [Suspect]
     Indication: NON-SMALL CELL LUNG CANCER
     Dosage: DATE OF MOST RECENT DOSE PRIOR TO AE ONSET- 17/OCT/2012; LAST DOSE TAKEN- 1130 MG
     Route: 042
     Dates: start: 20120815
  3. PACLITAXEL [Suspect]
     Indication: NON-SMALL CELL LUNG CANCER
     Dosage: DATE OF MOST RECENT DOSE PRIOR TO AE ONSET- 17/OCT/2012; LAST DOSE TAKEN- 390 MG
     Route: 042
     Dates: start: 20120815, end: 20121017
  4. CARBOPLATIN [Suspect]
     Indication: NON-SMALL CELL LUNG CANCER
     Dosage: DATE OF MOST RECENT DOSE PRIOR TO AE ONSET- 17/OCT/2012; LAST DOSE TAKEN- 680 MG
     Route: 042
     Dates: start: 20120815, end: 20121017
  5. KARVEA [Concomitant]
     Indication: HYPERTENSION
     Route: 048
     Dates: start: 2009
  6. PAROXETINE [Concomitant]
     Indication: ANXIETY
     Route: 048
     Dates: start: 2009
  7. ENDONE [Concomitant]
     Indication: PAIN IN EXTREMITY
     Route: 048
     Dates: start: 20120818
  8. AMLODIPINE [Concomitant]
     Indication: HYPERTENSION
     Route: 048
     Dates: start: 20120903
  9. PANADOL OSTEO [Concomitant]
     Indication: PAIN IN EXTREMITY
     Route: 048
     Dates: start: 201208
  10. PALONOSETRON [Concomitant]
     Indication: PROPHYLAXIS OF NAUSEA AND VOMITING
     Route: 042
     Dates: start: 20121017, end: 20121017
  11. RANITIDINE [Concomitant]
     Indication: PROPHYLAXIS OF NAUSEA AND VOMITING
     Route: 042
     Dates: start: 20121017, end: 20121017
  12. DEXAMETHASONE [Concomitant]
     Indication: PREMEDICATION
     Route: 048
     Dates: start: 20121018, end: 20121019
  13. DEXAMETHASONE [Concomitant]
     Route: 048
     Dates: start: 20121016, end: 20121017
  14. VITAMIN D [Concomitant]
     Route: 048
     Dates: start: 20120809
  15. TAZOCIN [Concomitant]
     Indication: PYREXIA
     Route: 042
     Dates: start: 20121103, end: 20121108
  16. PHOSPHATE [Concomitant]
     Route: 048
     Dates: start: 20121104, end: 20121107
  17. BENZYLPENICILLIN [Concomitant]
     Indication: PYREXIA
     Route: 042
     Dates: start: 20121104, end: 20121105
  18. METRONIDAZOLE [Concomitant]
     Route: 042
     Dates: start: 20121105, end: 20121106
  19. PETHIDINE [Concomitant]
     Route: 042
     Dates: start: 20121106, end: 20121106

REACTIONS (4)
  - Pulmonary embolism [Recovered/Resolved]
  - Lower respiratory tract infection [Not Recovered/Not Resolved]
  - Interstitial lung disease [Recovered/Resolved with Sequelae]
  - Delirium [Recovered/Resolved]
